FAERS Safety Report 13939695 (Version 1)
Quarter: 2017Q3

REPORT INFORMATION
  Report Type: Spontaneous
  Country: US (occurrence: US)
  Receive Date: 20170906
  Receipt Date: 20170906
  Transmission Date: 20171127
  Serious: Yes (Other)
  Sender: FDA-Public Use
  Company Number: None

PATIENT
  Age: 70 Year
  Sex: Female
  Weight: 77.4 kg

DRUGS (1)
  1. PROLIXIN [Suspect]
     Active Substance: FLUPHENAZINE HYDROCHLORIDE
     Indication: PRODUCT USED FOR UNKNOWN INDICATION
     Route: 048

REACTIONS (10)
  - Sudden death [None]
  - Bladder disorder [None]
  - Weight increased [None]
  - Cardiac failure [None]
  - Depression [None]
  - Fatigue [None]
  - Myocardial infarction [None]
  - Haemorrhage [None]
  - Constipation [None]
  - Dental caries [None]
